FAERS Safety Report 8296733-X (Version None)
Quarter: 2012Q2

REPORT INFORMATION
  Report Type: 
  Country: None (occurrence: None)
  Receive Date: 20120418
  Receipt Date: 20111003
  Transmission Date: 20120825
  Serious: No
  Sender: FDA-Public Use
  Company Number: US-ASTRAZENECA-2011SE52008

PATIENT
  Age: 61 Year
  Sex: Female

DRUGS (4)
  1. NEXIUM [Suspect]
     Route: 048
  2. PRILOSEC [Suspect]
     Route: 048
  3. CRESTOR [Suspect]
     Route: 048
  4. STEROID [Concomitant]

REACTIONS (13)
  - JOINT RANGE OF MOTION DECREASED [None]
  - SWELLING [None]
  - RHEUMATOID ARTHRITIS [None]
  - ARTHRALGIA [None]
  - GASTRIC DISORDER [None]
  - ABDOMINAL DISCOMFORT [None]
  - ARTHRITIS [None]
  - DRUG INEFFECTIVE [None]
  - GASTRITIS [None]
  - DRUG EFFECT DECREASED [None]
  - FALL [None]
  - DYSPNOEA [None]
  - DYSPEPSIA [None]
